FAERS Safety Report 25703188 (Version 1)
Quarter: 2025Q3

REPORT INFORMATION
  Report Type: Spontaneous
  Country: CN (occurrence: CN)
  Receive Date: 20250820
  Receipt Date: 20250820
  Transmission Date: 20251020
  Serious: Yes (Hospitalization)
  Sender: ALEXION PHARMACEUTICALS
  Company Number: CN-ASTRAZENECA-202508CHN012056CN

PATIENT
  Age: 70 Year
  Sex: Female

DRUGS (2)
  1. DAPAGLIFLOZIN [Suspect]
     Active Substance: DAPAGLIFLOZIN
     Indication: Type 2 diabetes mellitus
     Dosage: 10 MILLIGRAM, QD
     Dates: start: 20231101, end: 20250723
  2. CARFLOGLITAZAR SODIUM [Concomitant]
     Active Substance: CARFLOGLITAZAR SODIUM
     Indication: Type 2 diabetes mellitus
     Dosage: 16 MILLIGRAM, QD
     Dates: start: 20231101, end: 20250723

REACTIONS (1)
  - Urinary tract disorder [Recovering/Resolving]

NARRATIVE: CASE EVENT DATE: 20250723
